FAERS Safety Report 4330615-0 (Version None)
Quarter: 2004Q2

REPORT INFORMATION
  Report Type: 
  Country: None (occurrence: None)
  Receive Date: 20040402
  Receipt Date: 20040323
  Transmission Date: 20050107
  Serious: Yes (Hospitalization)
  Sender: FDA-Public Use
  Company Number: JP-BRISTOL-MYERS SQUIBB COMPANY-12546701

PATIENT
  Age: 43 Year
  Sex: Male

DRUGS (6)
  1. EFAVIRENZ CAPS [Suspect]
     Indication: HIV INFECTION
     Dosage: INTERRUPTED ON 25-OCT-2002 AND RESTARTED ON 28-OCT-2002
     Route: 048
     Dates: start: 20010124
  2. ZERIT [Suspect]
     Indication: HIV INFECTION
     Route: 048
     Dates: start: 20010124, end: 20020704
  3. LAMIVUDINE [Suspect]
     Indication: HIV INFECTION
     Dosage: INTERRUPTED ON 25-OCT-2002 AND RESTARTED ON 28-OCT-2002
     Route: 048
     Dates: start: 20010124
  4. ZIDOVUDINE [Suspect]
     Indication: HIV INFECTION
     Route: 048
     Dates: start: 20020705, end: 20021025
  5. ABACAVIR SULFATE [Concomitant]
     Dates: start: 20021028
  6. SULFAMETHOXAZOLE + TRIMETHOPRIM [Concomitant]
     Dates: start: 20010124, end: 20020304

REACTIONS (11)
  - ALANINE AMINOTRANSFERASE INCREASED [None]
  - ANAEMIA [None]
  - ASPARTATE AMINOTRANSFERASE INCREASED [None]
  - BLOOD CHOLESTEROL INCREASED [None]
  - BLOOD TRIGLYCERIDES INCREASED [None]
  - BLOOD URIC ACID INCREASED [None]
  - FACIAL WASTING [None]
  - HEPATIC FUNCTION ABNORMAL [None]
  - HERPES ZOSTER [None]
  - HYPERLACTACIDAEMIA [None]
  - HYPERLIPIDAEMIA [None]
